FAERS Safety Report 9521675 (Version 1)
Quarter: 2013Q3

REPORT INFORMATION
  Report Type: Spontaneous
  Country: JP (occurrence: None)
  Receive Date: 20130911
  Receipt Date: 20130911
  Transmission Date: 20140515
  Serious: Yes (Other)
  Sender: FDA-Public Use
  Company Number: SYM-2013-10486

PATIENT
  Sex: Male

DRUGS (3)
  1. FLUOROURACIL (FLUOROURACIL) [Suspect]
     Indication: OESOPHAGEAL CARCINOMA
     Dosage: 750 MG/M2, EVERY 3 WEEKS
  2. DOCETAXEL [Suspect]
     Indication: OESOPHAGEAL CARCINOMA
  3. CISPLATIN (CISPLATIN) (CISPLATIN) [Suspect]

REACTIONS (3)
  - Thrombosis [None]
  - Disease recurrence [None]
  - Oesophageal carcinoma [None]
